FAERS Safety Report 17333194 (Version 2)
Quarter: 2020Q1

REPORT INFORMATION
  Report Type: Spontaneous
  Country: FR (occurrence: FR)
  Receive Date: 20200128
  Receipt Date: 20200302
  Transmission Date: 20200409
  Serious: Yes (Other)
  Sender: FDA-Public Use
  Company Number: FR-TEVA-2019-FR-1141359

PATIENT
  Age: 64 Year
  Sex: Female

DRUGS (2)
  1. ACTONEL [Suspect]
     Active Substance: RISEDRONATE SODIUM
     Indication: OSTEOPOROSIS
     Dosage: 35 MILLIGRAM EVERY 1 WEEK(S) 1 TABLET EVERY SUNDAY WITH A GLASS OF WATER AFTER BREAKFAST, ACTONEL GA
     Route: 048
     Dates: start: 201902
  2. VITAMIN D 100 000 [Concomitant]

REACTIONS (5)
  - Ear swelling [Unknown]
  - Ear discomfort [Unknown]
  - Deafness [Unknown]
  - Abdominal pain upper [Unknown]
  - Oedema [Unknown]

NARRATIVE: CASE EVENT DATE: 201904
